FAERS Safety Report 16031651 (Version 4)
Quarter: 2020Q3

REPORT INFORMATION
  Report Type: Spontaneous
  Country: US (occurrence: US)
  Receive Date: 20190304
  Receipt Date: 20200925
  Transmission Date: 20201102
  Serious: Yes (Other)
  Sender: FDA-Public Use
  Company Number: US-ASTRAZENECA-2018SF35037

PATIENT
  Age: 579 Month
  Sex: Female

DRUGS (42)
  1. PREDNISONE. [Concomitant]
     Active Substance: PREDNISONE
  2. TEMAZEPAM. [Concomitant]
     Active Substance: TEMAZEPAM
  3. AZITHROMYCIN ANHYDROUS. [Concomitant]
     Active Substance: AZITHROMYCIN ANHYDROUS
  4. HUMALOG [Concomitant]
     Active Substance: INSULIN LISPRO
  5. AMOXICILLIN. [Concomitant]
     Active Substance: AMOXICILLIN
  6. ASPIRIN. [Concomitant]
     Active Substance: ASPIRIN
  7. ONDANSETRON [Concomitant]
     Active Substance: ONDANSETRON
  8. CALCITRIOL. [Concomitant]
     Active Substance: CALCITRIOL
  9. FUROSEMIDE. [Concomitant]
     Active Substance: FUROSEMIDE
  10. NEXIUM [Suspect]
     Active Substance: ESOMEPRAZOLE MAGNESIUM
     Indication: GASTROOESOPHAGEAL REFLUX DISEASE
     Route: 048
  11. NEXIUM [Suspect]
     Active Substance: ESOMEPRAZOLE MAGNESIUM
     Indication: GASTROOESOPHAGEAL REFLUX DISEASE
     Route: 048
  12. FLUTICASONE. [Concomitant]
     Active Substance: FLUTICASONE
  13. RENA?VITE [Concomitant]
     Active Substance: ASCORBIC ACID\BIOTIN\CALCIUM PANTOTHENATE\CYANOCOBALAMIN\FOLIC ACID\NIACINAMIDE\PYRIDOXINE HYDROCHLORIDE\RIBOFLAVIN\THIAMINE MONONITRATE
  14. ASMANEX [Concomitant]
     Active Substance: MOMETASONE FUROATE
  15. SERTRALINE [Concomitant]
     Active Substance: SERTRALINE HYDROCHLORIDE
  16. SUMATRIPTAN. [Concomitant]
     Active Substance: SUMATRIPTAN
  17. GLIMEPIRIDE. [Concomitant]
     Active Substance: GLIMEPIRIDE
  18. VELTASSA [Concomitant]
     Active Substance: PATIROMER
  19. METOPROLOL TARTRATE. [Concomitant]
     Active Substance: METOPROLOL TARTRATE
  20. REGLAN [Concomitant]
     Active Substance: METOCLOPRAMIDE HYDROCHLORIDE
  21. NEXIUM [Suspect]
     Active Substance: ESOMEPRAZOLE MAGNESIUM
     Indication: GASTROOESOPHAGEAL REFLUX DISEASE
     Route: 048
     Dates: start: 20140101, end: 20161231
  22. NEXIUM [Suspect]
     Active Substance: ESOMEPRAZOLE MAGNESIUM
     Indication: GASTROOESOPHAGEAL REFLUX DISEASE
     Route: 048
  23. CEFDINIR. [Concomitant]
     Active Substance: CEFDINIR
  24. MONTELUKAST [Concomitant]
     Active Substance: MONTELUKAST SODIUM
  25. BANOPHEN [Concomitant]
     Active Substance: DIPHENHYDRAMINE HYDROCHLORIDE
  26. ACETAMINOPHEN. [Concomitant]
     Active Substance: ACETAMINOPHEN
  27. LEVOTHYROXINE. [Concomitant]
     Active Substance: LEVOTHYROXINE
  28. LEVOFLOXACIN. [Concomitant]
     Active Substance: LEVOFLOXACIN
  29. SUCRALFATE. [Concomitant]
     Active Substance: SUCRALFATE
  30. NEXIUM [Suspect]
     Active Substance: ESOMEPRAZOLE MAGNESIUM
     Indication: GASTROOESOPHAGEAL REFLUX DISEASE
     Route: 048
     Dates: start: 200904, end: 201712
  31. OMEPRAZOLE. [Suspect]
     Active Substance: OMEPRAZOLE
     Indication: GASTROOESOPHAGEAL REFLUX DISEASE
     Route: 065
     Dates: start: 201004, end: 201208
  32. PANTOPRAZOLE [Suspect]
     Active Substance: PANTOPRAZOLE
     Indication: GASTROOESOPHAGEAL REFLUX DISEASE
     Route: 065
     Dates: start: 201507, end: 201508
  33. ATORVASTATIN [Concomitant]
     Active Substance: ATORVASTATIN
  34. WALGREENS [Concomitant]
  35. CYPROHEPTADINE. [Concomitant]
     Active Substance: CYPROHEPTADINE
  36. RHINOCORT [Concomitant]
     Active Substance: BUDESONIDE
  37. IBUPROFEN. [Concomitant]
     Active Substance: IBUPROFEN
  38. PROVENTIL [Concomitant]
     Active Substance: ALBUTEROL
  39. LYRICA [Concomitant]
     Active Substance: PREGABALIN
  40. MUCINEX [Concomitant]
     Active Substance: GUAIFENESIN
  41. SODIUM POLYSTYRENE [Concomitant]
     Active Substance: SODIUM POLYSTYRENE SULFONATE
  42. ENALAPRIL [Concomitant]
     Active Substance: ENALAPRIL

REACTIONS (3)
  - Chronic kidney disease [Not Recovered/Not Resolved]
  - Renal injury [Unknown]
  - Renal failure [Unknown]

NARRATIVE: CASE EVENT DATE: 201709
